FAERS Safety Report 24216371 (Version 2)
Quarter: 2024Q3

REPORT INFORMATION
  Report Type: Report from Study
  Country: TN (occurrence: TN)
  Receive Date: 20240816
  Receipt Date: 20240820
  Transmission Date: 20241017
  Serious: Yes (Other)
  Sender: ROCHE
  Company Number: TN-ROCHE-10000049693

PATIENT

DRUGS (1)
  1. TOCILIZUMAB [Suspect]
     Active Substance: TOCILIZUMAB
     Indication: COVID-19
     Route: 065

REACTIONS (17)
  - Off label use [Unknown]
  - Renal failure [Unknown]
  - Cholestasis [Unknown]
  - Cell death [Unknown]
  - Myocarditis [Unknown]
  - Thrombosis [Unknown]
  - Pneumothorax [Unknown]
  - Pneumonia [Unknown]
  - Infection [Unknown]
  - Pneumonia [Unknown]
  - Urinary tract infection [Unknown]
  - Haematological infection [Unknown]
  - Device related infection [Unknown]
  - Gastrointestinal haemorrhage [Unknown]
  - Disseminated intravascular coagulation [Unknown]
  - Multiple organ dysfunction syndrome [Unknown]
  - Cholestasis [Unknown]
